FAERS Safety Report 4300014-6 (Version None)
Quarter: 2004Q1

REPORT INFORMATION
  Report Type: 
  Country: None (occurrence: None)
  Receive Date: 20040218
  Receipt Date: 20040209
  Transmission Date: 20041129
  Serious: Yes (Hospitalization, Disabling)
  Sender: FDA-Public Use
  Company Number: 2004SE00668

PATIENT
  Sex: Male

DRUGS (7)
  1. BLOPRESS [Suspect]
     Indication: HYPERTENSION
     Dosage: 8 MG QD PO
     Route: 048
     Dates: start: 20031009, end: 20040122
  2. LASIX [Suspect]
     Indication: CARDIAC FAILURE CHRONIC
     Dosage: 40 MG DAILY PO
     Route: 048
     Dates: start: 20031009
  3. VALPROATE SODIUM [Concomitant]
  4. ZONISAMIDE [Concomitant]
  5. NICORANDIL [Concomitant]
  6. TICLOPIDINE HYDROCHLORIDE [Concomitant]
  7. METILDIGOXIN [Concomitant]

REACTIONS (3)
  - HYPOTENSION [None]
  - PALLOR [None]
  - SOMNOLENCE [None]
